FAERS Safety Report 6602465-3 (Version None)
Quarter: 2010Q2

REPORT INFORMATION
  Report Type: 
  Country: None (occurrence: None)
  Receive Date: 20100225
  Receipt Date: 20100216
  Transmission Date: 20101027
  Serious: Yes (Other)
  Sender: FDA-Public Use
  Company Number: US-JNJFOC-20091007545

PATIENT
  Sex: Female
  Weight: 6.35 kg

DRUGS (3)
  1. CONCENTRATED TYLENOL INFANT DROPS [Suspect]
     Indication: PAIN
  2. CONCENTRATED TYLENOL INFANT DROPS [Suspect]
     Indication: PYREXIA
  3. CONCENTRATED TYLENOL INFANT DROPS [Suspect]
     Indication: TEETHING

REACTIONS (5)
  - INADEQUATE DIET [None]
  - MALAISE [None]
  - PYREXIA [None]
  - RASH MACULO-PAPULAR [None]
  - TRANSMISSION OF AN INFECTIOUS AGENT VIA A MEDICINAL PRODUCT [None]
